FAERS Safety Report 21496455 (Version 4)
Quarter: 2024Q2

REPORT INFORMATION
  Report Type: Report from Study
  Country: US (occurrence: US)
  Receive Date: 20221022
  Receipt Date: 20240626
  Transmission Date: 20240715
  Serious: Yes (Other)
  Sender: FDA-Public Use
  Company Number: US-ABBVIE-4173588

PATIENT
  Age: 82 Year
  Sex: Male
  Weight: 84 kg

DRUGS (5)
  1. SKYRIZI [Suspect]
     Active Substance: RISANKIZUMAB-RZAA
     Indication: Psoriasis
     Route: 058
     Dates: start: 20201201
  2. SKYRIZI [Suspect]
     Active Substance: RISANKIZUMAB-RZAA
     Route: 058
     Dates: start: 20210901
  3. MODERNA COVID-19 VACCINE [Concomitant]
     Active Substance: ELASOMERAN
     Indication: COVID-19 immunisation
     Dosage: ONE IN ONCE
     Route: 030
  4. MODERNA COVID-19 VACCINE [Concomitant]
     Active Substance: ELASOMERAN
     Indication: COVID-19 immunisation
     Dosage: ONE IN ONCE
     Route: 030
  5. MODERNA COVID-19 VACCINE [Concomitant]
     Active Substance: ELASOMERAN
     Indication: COVID-19 immunisation
     Dosage: ONE IN ONCE, BOOSTER DOSE
     Route: 030

REACTIONS (6)
  - Cardiac pacemaker insertion [Recovering/Resolving]
  - Psoriasis [Not Recovered/Not Resolved]
  - Skin warm [Unknown]
  - Coronary arterial stent insertion [Recovering/Resolving]
  - Eczema [Recovering/Resolving]
  - Sunburn [Unknown]

NARRATIVE: CASE EVENT DATE: 20230120
